FAERS Safety Report 19952977 (Version 1)
Quarter: 2021Q4

REPORT INFORMATION
  Report Type: Spontaneous
  Country: US (occurrence: US)
  Receive Date: 20211012
  Receipt Date: 20211012
  Transmission Date: 20220303
  Serious: Yes (Life-Threatening)
  Sender: FDA-Public Use
  Company Number: None

PATIENT
  Age: 79 Year
  Sex: Male
  Weight: 102 kg

DRUGS (1)
  1. GLIPIZIDE [Suspect]
     Active Substance: GLIPIZIDE
     Indication: Diabetes mellitus
     Route: 048
     Dates: start: 20200507, end: 20210412

REACTIONS (3)
  - Hypoglycaemia [None]
  - Orthopnoea [None]
  - Dyspnoea [None]

NARRATIVE: CASE EVENT DATE: 20210812
